FAERS Safety Report 4596450-3 (Version None)
Quarter: 2005Q1

REPORT INFORMATION
  Report Type: 
  Country: None (occurrence: None)
  Receive Date: 20050228
  Receipt Date: 20050214
  Transmission Date: 20050727
  Serious: Yes (Other)
  Sender: FDA-Public Use
  Company Number: 2005025686

PATIENT

DRUGS (1)
  1. EPIRUBICIN [Suspect]
     Indication: BREAST CANCER
     Dosage: INTRAVENOUS
     Route: 042

REACTIONS (1)
  - EOSINOPHILIC PNEUMONIA [None]
